FAERS Safety Report 6339524-9 (Version None)
Quarter: 2009Q3

REPORT INFORMATION
  Report Type: 
  Country: None (occurrence: None)
  Receive Date: 20090903
  Receipt Date: 20090825
  Transmission Date: 20100115
  Serious: Yes (Hospitalization)
  Sender: FDA-Public Use
  Company Number: FR-WYE-H10789809

PATIENT
  Sex: Female

DRUGS (3)
  1. CORDARONE [Suspect]
     Route: 048
     Dates: start: 20070101, end: 20080103
  2. PREVISCAN [Concomitant]
     Dosage: UNSPECIFIED
     Route: 048
  3. FLECAINIDE ACETATE [Suspect]
     Route: 048
     Dates: start: 20070101, end: 20071230

REACTIONS (3)
  - BUNDLE BRANCH BLOCK RIGHT [None]
  - FALL [None]
  - MUSCULAR WEAKNESS [None]
